FAERS Safety Report 13828258 (Version 1)
Quarter: 2017Q3

REPORT INFORMATION
  Report Type: Spontaneous
  Country: US (occurrence: US)
  Receive Date: 20170802
  Receipt Date: 20170802
  Transmission Date: 20171127
  Serious: Yes (Hospitalization)
  Sender: FDA-Public Use
  Company Number: None

PATIENT
  Age: 78 Year
  Sex: Female

DRUGS (16)
  1. XALKORI [Suspect]
     Active Substance: CRIZOTINIB
     Indication: BREAST CANCER
     Route: 048
     Dates: start: 20170606
  2. ACETAMIN [Concomitant]
     Active Substance: ACETAMINOPHEN
  3. DILTIAZEM. [Concomitant]
     Active Substance: DILTIAZEM
  4. ELIQUIS [Concomitant]
     Active Substance: APIXABAN
  5. CLONIDINE. [Concomitant]
     Active Substance: CLONIDINE
  6. SPIRONOLACT [Concomitant]
     Active Substance: SPIRONOLACTONE
  7. GABAPENTIN. [Concomitant]
     Active Substance: GABAPENTIN
  8. CITRACEL [Concomitant]
  9. VITAMIN B12 [Concomitant]
     Active Substance: CYANOCOBALAMIN
  10. FUROSEMIDE. [Concomitant]
     Active Substance: FUROSEMIDE
  11. LISINOPRIL. [Concomitant]
     Active Substance: LISINOPRIL
  12. MULTIVITAMIN [Concomitant]
     Active Substance: VITAMINS
  13. KLOR-CON [Concomitant]
     Active Substance: POTASSIUM CHLORIDE
  14. VITAMIN D [Concomitant]
     Active Substance: CHOLECALCIFEROL
  15. FLECAINIDE [Concomitant]
     Active Substance: FLECAINIDE
  16. RANITIDINE. [Concomitant]
     Active Substance: RANITIDINE

REACTIONS (2)
  - Drug dose omission [None]
  - Spinal fracture [None]

NARRATIVE: CASE EVENT DATE: 20170718
